FAERS Safety Report 6768830-9 (Version None)
Quarter: 2010Q2

REPORT INFORMATION
  Report Type: 
  Country: None (occurrence: None)
  Receive Date: 20100611
  Receipt Date: 20100607
  Transmission Date: 20101027
  Serious: Yes (Hospitalization)
  Sender: FDA-Public Use
  Company Number: 2010AL003324

PATIENT
  Age: 76 Year
  Sex: Female
  Weight: 56.3 kg

DRUGS (3)
  1. MIRTAZAPINE [Suspect]
     Indication: DEPRESSION
     Dosage: 30 MG;QD
  2. TELMISARTAN [Concomitant]
  3. HYDROCHLOROTHIAZIDE [Concomitant]

REACTIONS (4)
  - APHASIA [None]
  - HYPONATRAEMIA [None]
  - LETHARGY [None]
  - SOMNOLENCE [None]
